FAERS Safety Report 23223782 (Version 3)
Quarter: 2023Q4

REPORT INFORMATION
  Report Type: Report from Study
  Country: DE (occurrence: DE)
  Receive Date: 20231124
  Receipt Date: 20231230
  Transmission Date: 20240109
  Serious: Yes (Other)
  Sender: FDA-Public Use
  Company Number: DE-CIPLA (EU) LIMITED-2023DE01411

PATIENT
  Age: 65 Year
  Sex: Male

DRUGS (1)
  1. BORTEZOMIB [Suspect]
     Active Substance: BORTEZOMIB
     Indication: Plasma cell myeloma
     Dosage: 23.4 MILLIGRAM/SQ. METER, (4 CYCLES APPROXIMATE CUMULATIVE DOSE)
     Route: 065
     Dates: start: 2021

REACTIONS (7)
  - Neuropathy peripheral [Unknown]
  - Paraesthesia [Unknown]
  - Hypoaesthesia [Unknown]
  - Pain [Unknown]
  - Diffuse axonal injury [Unknown]
  - Sensory loss [Unknown]
  - Neuralgia [Unknown]

NARRATIVE: CASE EVENT DATE: 20210101
